FAERS Safety Report 15023149 (Version 1)
Quarter: 2018Q2

REPORT INFORMATION
  Report Type: Spontaneous
  Country: FR (occurrence: FR)
  Receive Date: 20180618
  Receipt Date: 20180618
  Transmission Date: 20180711
  Serious: Yes (Other)
  Sender: FDA-Public Use
  Company Number: FR-TEVA-2018-FR-908948

PATIENT
  Age: 30 Year
  Sex: Female
  Weight: 56 kg

DRUGS (1)
  1. TRAMADOL (CHLORHYDRATE DE) [Suspect]
     Active Substance: TRAMADOL HYDROCHLORIDE
     Indication: PAIN PROPHYLAXIS
     Dosage: 300 MILLIGRAM DAILY;
     Route: 048
     Dates: start: 20180227, end: 20180315

REACTIONS (9)
  - Dependence [Not Recovered/Not Resolved]
  - Stress [Not Recovered/Not Resolved]
  - Anxiety [Not Recovered/Not Resolved]
  - Insomnia [Not Recovered/Not Resolved]
  - Cold sweat [Not Recovered/Not Resolved]
  - Dysuria [Not Recovered/Not Resolved]
  - Panic disorder [Not Recovered/Not Resolved]
  - Pruritus [Not Recovered/Not Resolved]
  - Ear pain [Not Recovered/Not Resolved]

NARRATIVE: CASE EVENT DATE: 20180227
